FAERS Safety Report 20174950 (Version 1)
Quarter: 2021Q4

REPORT INFORMATION
  Report Type: Spontaneous
  Country: GB (occurrence: GB)
  Receive Date: 20211213
  Receipt Date: 20211213
  Transmission Date: 20220303
  Serious: Yes (Disabling, Other)
  Sender: FDA-Public Use
  Company Number: None

PATIENT
  Age: 23 Year
  Sex: Female
  Weight: 61 kg

DRUGS (8)
  1. AMITRIPTYLINE [Suspect]
     Active Substance: AMITRIPTYLINE
     Indication: Irritable bowel syndrome
     Dates: start: 20200306
  2. DESOGESTREL [Suspect]
     Active Substance: DESOGESTREL
     Indication: Contraception
     Dates: start: 20171208
  3. PFIZER-BIONTECH COVID-19 VACCINE [Suspect]
     Active Substance: TOZINAMERAN
     Indication: COVID-19 immunisation
     Dosage: DOSE 1
     Dates: start: 20210618, end: 20210618
  4. IBUPROFEN [Concomitant]
     Active Substance: IBUPROFEN
     Indication: Analgesic therapy
  5. PROGESTERONE [Concomitant]
     Active Substance: PROGESTERONE
  6. AMITRIPTYLINE [Concomitant]
     Active Substance: AMITRIPTYLINE
     Indication: Irritable bowel syndrome
     Dates: start: 202003
  7. BUTYLSCOPOLAMINE BROMIDE [Concomitant]
     Active Substance: BUTYLSCOPOLAMINE BROMIDE
     Indication: Irritable bowel syndrome
     Dates: start: 2021, end: 20210614
  8. DESOGESTREL [Concomitant]
     Active Substance: DESOGESTREL
     Indication: Contraception
     Dates: start: 2019

REACTIONS (16)
  - Myalgia [Unknown]
  - Fatigue [Recovered/Resolved]
  - Chest pain [Recovering/Resolving]
  - Pyrexia [Unknown]
  - Intermenstrual bleeding [Not Recovered/Not Resolved]
  - Heart rate increased [Not Recovered/Not Resolved]
  - Dyspnoea [Recovering/Resolving]
  - Vaccination site pain [Recovering/Resolving]
  - Menstrual disorder [Unknown]
  - Back pain [Recovering/Resolving]
  - Myocarditis [Not Recovered/Not Resolved]
  - Premenstrual pain [Recovering/Resolving]
  - Electrocardiogram QT prolonged [Unknown]
  - Tachycardia [Unknown]
  - Palpitations [Not Recovered/Not Resolved]
  - Off label use [Unknown]

NARRATIVE: CASE EVENT DATE: 20210618
